FAERS Safety Report 12389835 (Version 4)
Quarter: 2018Q1

REPORT INFORMATION
  Report Type: Spontaneous
  Country: US (occurrence: US)
  Receive Date: 20160520
  Receipt Date: 20180212
  Transmission Date: 20180508
  Serious: Yes (Death, Hospitalization, Other)
  Sender: FDA-Public Use
  Company Number: US-ACTELION-A-US2016-136496

PATIENT
  Age: 83 Year
  Sex: Female

DRUGS (1)
  1. OPSUMIT [Suspect]
     Active Substance: MACITENTAN
     Indication: PULMONARY HYPERTENSION
     Dosage: 10 MG, QD
     Route: 048
     Dates: start: 20150202

REACTIONS (25)
  - Neuropathy peripheral [Unknown]
  - Gastrooesophageal reflux disease [Unknown]
  - Sleep apnoea syndrome [Unknown]
  - Ascites [Fatal]
  - Aortic stenosis [Unknown]
  - Pulmonary arterial hypertension [Fatal]
  - Varices oesophageal [Fatal]
  - Splenomegaly [Unknown]
  - Depression [Unknown]
  - Hypertension [Unknown]
  - Connective tissue disorder [Fatal]
  - Coronary artery bypass [Fatal]
  - Hypothyroidism [Unknown]
  - Anaemia [Fatal]
  - Hepatic cirrhosis [Fatal]
  - Chest pain [Recovered/Resolved]
  - Hyperlipidaemia [Unknown]
  - Coronary artery disease [Fatal]
  - Scleroderma [Fatal]
  - Right ventricular failure [Fatal]
  - Disease progression [Fatal]
  - Interstitial lung disease [Fatal]
  - Staphylococcal infection [Recovered/Resolved]
  - Peripheral vascular disorder [Unknown]
  - Thrombocytopenia [Unknown]

NARRATIVE: CASE EVENT DATE: 20160401
